FAERS Safety Report 25622511 (Version 5)
Quarter: 2025Q4

REPORT INFORMATION
  Report Type: Spontaneous
  Country: CA (occurrence: CA)
  Receive Date: 20250730
  Receipt Date: 20251117
  Transmission Date: 20260118
  Serious: Yes (Other)
  Sender: PFIZER
  Company Number: CA-PFIZER INC-202500087652

PATIENT
  Age: 36 Year
  Sex: Female
  Weight: 61 kg

DRUGS (7)
  1. IXIFI [Suspect]
     Active Substance: INFLIXIMAB-QBTX
     Indication: Crohn^s disease
     Dosage: 6.56MG/KG, EVERY 4 WEEKS
     Route: 042
     Dates: start: 20250627
  2. IXIFI [Suspect]
     Active Substance: INFLIXIMAB-QBTX
     Dosage: EVERY 4 WEEKS
     Route: 042
     Dates: start: 20250725
  3. IXIFI [Suspect]
     Active Substance: INFLIXIMAB-QBTX
     Dosage: EVERY 4 WEEKS
     Route: 042
     Dates: start: 20250819
  4. IXIFI [Suspect]
     Active Substance: INFLIXIMAB-QBTX
     Dosage: EVERY 4 WEEKS
     Route: 042
     Dates: start: 20250820
  5. IXIFI [Suspect]
     Active Substance: INFLIXIMAB-QBTX
     Dosage: EVERY 4 WEEKS
     Route: 042
     Dates: start: 20250919
  6. IXIFI [Suspect]
     Active Substance: INFLIXIMAB-QBTX
     Dosage: EVERY 4 WEEKS
     Route: 042
     Dates: start: 20251015
  7. IXIFI [Suspect]
     Active Substance: INFLIXIMAB-QBTX
     Dosage: 3 WEEKS 5 DAYS
     Route: 042
     Dates: start: 20251110

REACTIONS (7)
  - Condition aggravated [Recovering/Resolving]
  - Abdominal pain [Unknown]
  - Back pain [Unknown]
  - Dental operation [Recovered/Resolved]
  - Anal fissure [Recovered/Resolved]
  - Discomfort [Not Recovered/Not Resolved]
  - Off label use [Unknown]

NARRATIVE: CASE EVENT DATE: 20250101
